FAERS Safety Report 6232928-4 (Version None)
Quarter: 2009Q2

REPORT INFORMATION
  Report Type: 
  Country: None (occurrence: None)
  Receive Date: 20090617
  Receipt Date: 20090607
  Transmission Date: 20091009
  Serious: Yes (Other)
  Sender: FDA-Public Use
  Company Number: CN-BAXTER-2009BH009797

PATIENT
  Age: 30 Year
  Sex: Female

DRUGS (4)
  1. DEXTROSE 5% [Suspect]
     Indication: VOMITING IN PREGNANCY
     Route: 042
     Dates: start: 20090607, end: 20090607
  2. DEXTROSE 5% [Suspect]
     Indication: ELECTROLYTE IMBALANCE
     Route: 042
     Dates: start: 20090607, end: 20090607
  3. VITAMIN INJECTION [Suspect]
     Indication: VOMITING IN PREGNANCY
     Route: 042
     Dates: start: 20090607, end: 20090607
  4. VITAMIN INJECTION [Suspect]
     Indication: ELECTROLYTE IMBALANCE
     Route: 042
     Dates: start: 20090607, end: 20090607

REACTIONS (2)
  - DRUG EXPOSURE DURING PREGNANCY [None]
  - PRODUCT CONTAMINATION PHYSICAL [None]
